FAERS Safety Report 9774275 (Version 1)
Quarter: 2013Q4

REPORT INFORMATION
  Report Type: Spontaneous
  Country: US (occurrence: US)
  Receive Date: 20131220
  Receipt Date: 20131220
  Transmission Date: 20140711
  Serious: Yes (Hospitalization)
  Sender: FDA-Public Use
  Company Number: US-ROCHE-1320962

PATIENT
  Age: 49 Year
  Sex: Female
  Weight: 73.55 kg

DRUGS (6)
  1. PEGASYS [Suspect]
     Indication: CHRONIC HEPATITIS C
     Route: 058
     Dates: start: 20130918
  2. RIBAVIRIN [Suspect]
     Indication: CHRONIC HEPATITIS C
     Route: 048
     Dates: start: 20130918
  3. INCIVEK [Suspect]
     Indication: CHRONIC HEPATITIS C
     Route: 048
     Dates: start: 20130918, end: 20131204
  4. IBUPROFEN [Concomitant]
     Route: 048
  5. BENADRYL ALLERGY (UNITED STATES) [Concomitant]
     Route: 048
  6. BYDUREON [Concomitant]
     Route: 048

REACTIONS (1)
  - Convulsion [Recovered/Resolved]
